FAERS Safety Report 5674607-8 (Version None)
Quarter: 2008Q1

REPORT INFORMATION
  Report Type: 
  Country: None (occurrence: None)
  Receive Date: 20080320
  Receipt Date: 20080311
  Transmission Date: 20080703
  Serious: Yes (Death)
  Sender: FDA-Public Use
  Company Number: US-PURDUE-USA_2007_0030723

PATIENT
  Age: 46 Year
  Sex: Male
  Weight: 50 kg

DRUGS (2)
  1. OXYCONTIN [Suspect]
     Indication: PAIN
     Dosage: UNK, SEE TEXT
     Route: 048
  2. MORPHINE SULFATE [Concomitant]
     Indication: BREAKTHROUGH PAIN

REACTIONS (2)
  - GASTRIC HAEMORRHAGE [None]
  - MULTIPLE MYELOMA [None]
